FAERS Safety Report 5476908-5 (Version None)
Quarter: 2007Q3

REPORT INFORMATION
  Report Type: 
  Country: None (occurrence: None)
  Receive Date: 20070912
  Receipt Date: 20070820
  Transmission Date: 20080115
  Serious: No
  Sender: FDA-Public Use
  Company Number: 002#2#2007-00121

PATIENT
  Age: 60 Year
  Sex: Female
  Weight: 54.4316 kg

DRUGS (7)
  1. NEUPRO [Suspect]
     Indication: PARKINSON'S DISEASE
     Dosage: 2MG/24H, 1 IN 1 D,TRANSDERMAL
     Route: 062
     Dates: start: 20070719, end: 20070720
  2. KLONOPIN [Concomitant]
  3. REQUIP [Concomitant]
  4. SYNTHROID [Concomitant]
  5. LIPITOR [Concomitant]
  6. SINEMET [Concomitant]
  7. SINEMET CR [Concomitant]

REACTIONS (3)
  - MUSCLE TWITCHING [None]
  - POLLAKIURIA [None]
  - URINARY TRACT INFECTION [None]
